FAERS Safety Report 5706316-0 (Version None)
Quarter: 2008Q2

REPORT INFORMATION
  Report Type: 
  Country: None (occurrence: None)
  Receive Date: 20080409
  Receipt Date: 20071023
  Transmission Date: 20081010
  Serious: Yes (Hospitalization)
  Sender: FDA-Public Use
  Company Number: 155

PATIENT
  Sex: Female

DRUGS (2)
  1. FAZACLO ODT [Suspect]
     Indication: SCHIZOPHRENIA
     Dosage: 150 MG PO DAILY
     Route: 048
     Dates: start: 20060321, end: 20071024
  2. DEPAKOTE [Concomitant]

REACTIONS (2)
  - CONVULSION [None]
  - PSYCHOTIC DISORDER [None]
